FAERS Safety Report 10587333 (Version 3)
Quarter: 2015Q1

REPORT INFORMATION
  Report Type: Report from Study
  Country: MX (occurrence: MX)
  Receive Date: 20141117
  Receipt Date: 20150218
  Transmission Date: 20150720
  Serious: Yes (Other)
  Sender: FDA-Public Use
  Company Number: PHHY2014MX062805

PATIENT
  Age: 57 Year
  Sex: Female

DRUGS (1)
  1. TASIGNA [Suspect]
     Active Substance: NILOTINIB
     Indication: CHRONIC MYELOID LEUKAEMIA
     Dosage: 2 DF, BID (4 X 200 MG DAILY), 2 CAPSULE IN MORNING AND 2 IN EVENING
     Route: 048

REACTIONS (21)
  - Vein disorder [Not Recovered/Not Resolved]
  - Asthenia [Not Recovered/Not Resolved]
  - Fear [Not Recovered/Not Resolved]
  - Anxiety [Not Recovered/Not Resolved]
  - Joint injury [Unknown]
  - Restlessness [Not Recovered/Not Resolved]
  - Gait disturbance [Not Recovered/Not Resolved]
  - Cartilage injury [Not Recovered/Not Resolved]
  - Hepatic function abnormal [Unknown]
  - Sleep disorder [Unknown]
  - Cardiovascular insufficiency [Not Recovered/Not Resolved]
  - Blood test abnormal [Unknown]
  - Fall [Unknown]
  - Chest pain [Recovered/Resolved]
  - Dizziness [Not Recovered/Not Resolved]
  - Anger [Not Recovered/Not Resolved]
  - Ear disorder [Not Recovered/Not Resolved]
  - Distractibility [Not Recovered/Not Resolved]
  - Arthritis [Not Recovered/Not Resolved]
  - Arthralgia [Not Recovered/Not Resolved]
  - Joint swelling [Not Recovered/Not Resolved]

NARRATIVE: CASE EVENT DATE: 201403
